FAERS Safety Report 8069698-3 (Version None)
Quarter: 2012Q1

REPORT INFORMATION
  Report Type: 
  Country: None (occurrence: None)
  Receive Date: 20120125
  Receipt Date: 20120123
  Transmission Date: 20120608
  Serious: Yes (Hospitalization)
  Sender: FDA-Public Use
  Company Number: FR-SANOFI-AVENTIS-2011SA083242

PATIENT
  Age: 14 Year
  Sex: Female

DRUGS (16)
  1. TACROLIMUS [Suspect]
     Route: 048
     Dates: start: 20111007
  2. VFEND [Concomitant]
     Route: 065
  3. CREON [Concomitant]
  4. INSULIN [Concomitant]
  5. TACROLIMUS [Suspect]
     Indication: LUNG TRANSPLANT
     Route: 048
     Dates: start: 20051001, end: 20110912
  6. TACROLIMUS [Suspect]
     Route: 048
     Dates: start: 20110922, end: 20111006
  7. RIFADIN [Suspect]
     Indication: PULMONARY TUBERCULOSIS
     Route: 048
     Dates: start: 20110608, end: 20111009
  8. MYCOPHENOLATE MOFETIL (CELLCEPT) [Suspect]
     Indication: LUNG TRANSPLANT
     Route: 048
     Dates: start: 20051020, end: 20111010
  9. TACROLIMUS [Suspect]
     Route: 048
     Dates: start: 20110916, end: 20110921
  10. RIMIFON [Suspect]
     Indication: TUBERCULOSIS
     Route: 048
     Dates: start: 20110608, end: 20111009
  11. TOCO [Concomitant]
  12. VFEND [Concomitant]
     Indication: ASPERGILLOSIS
     Route: 048
     Dates: start: 20110913, end: 20110928
  13. VFEND [Concomitant]
     Route: 048
     Dates: start: 20110929
  14. RETINOL [Concomitant]
  15. MYCOPHENOLATE MOFETIL (CELLCEPT) [Suspect]
     Route: 048
     Dates: start: 20111011
  16. NEXIUM [Suspect]
     Route: 048
     Dates: start: 20110913, end: 20111013

REACTIONS (3)
  - BICYTOPENIA [None]
  - ANAEMIA [None]
  - NEUTROPENIA [None]
